FAERS Safety Report 7563254-9 (Version None)
Quarter: 2011Q2

REPORT INFORMATION
  Report Type: 
  Country: None (occurrence: None)
  Receive Date: 20110615
  Receipt Date: 20110530
  Transmission Date: 20111010
  Serious: Yes (Life-Threatening)
  Sender: FDA-Public Use
  Company Number: 2011SP027064

PATIENT
  Age: 63 Year
  Sex: Male

DRUGS (1)
  1. ROCURONIUM BROMIDE [Suspect]
     Indication: NEUROMUSCULAR BLOCKING THERAPY
     Dosage: 50 MG; ONCE; IV
     Route: 042
     Dates: start: 20110101, end: 20110101

REACTIONS (2)
  - ARTERIOSPASM CORONARY [None]
  - FLUSHING [None]
